FAERS Safety Report 21285164 (Version 1)
Quarter: 2022Q3

REPORT INFORMATION
  Report Type: Spontaneous
  Country: FR (occurrence: FR)
  Receive Date: 20220902
  Receipt Date: 20220902
  Transmission Date: 20221026
  Serious: Yes (Hospitalization)
  Sender: FDA-Public Use
  Company Number: None

PATIENT
  Age: 88 Year
  Sex: Female
  Weight: 79 kg

DRUGS (3)
  1. AMOXICILLIN [Suspect]
     Active Substance: AMOXICILLIN
     Indication: Osteomyelitis
     Dosage: 2000 MILLIGRAM DAILY; THERAPY END DATE : NOT ASKED, UNIT DOSE : 2000 MG,FREQUENCY TIME : 1 DAYS
     Route: 065
     Dates: start: 20190613
  2. DOXYCYCLINE [Suspect]
     Active Substance: DOXYCYCLINE
     Indication: Osteomyelitis
     Dosage: 200 MILLIGRAM DAILY; THERAPY END DATE : NOT ASKED, UNIT DOSE : 200 MG,FREQUENCY TIME : 1 DAYS
     Route: 065
     Dates: start: 20190613
  3. AVIBACTAM SODIUM\CEFTAZIDIME [Suspect]
     Active Substance: AVIBACTAM SODIUM\CEFTAZIDIME
     Indication: Osteomyelitis
     Dosage: 3000 MILLIGRAM DAILY; UNIT DOSE : 3000 MG, FREQUENCY TIME : 1 DAYS, THERAPY DURATION : 17 DAYS
     Route: 065
     Dates: start: 20220308, end: 20220325

REACTIONS (2)
  - Diarrhoea [Recovered/Resolved]
  - Hypokalaemia [Recovered/Resolved]

NARRATIVE: CASE EVENT DATE: 20220325
